FAERS Safety Report 12484845 (Version 1)
Quarter: 2016Q2

REPORT INFORMATION
  Report Type: Spontaneous
  Country: US (occurrence: US)
  Receive Date: 20160621
  Receipt Date: 20160621
  Transmission Date: 20160815
  Serious: No
  Sender: FDA-Public Use
  Company Number: US-TEVA-668034USA

PATIENT
  Age: 82 Year
  Sex: Female

DRUGS (2)
  1. PROAIR HFA [Suspect]
     Active Substance: ALBUTEROL SULFATE
     Indication: DYSPNOEA
     Dosage: TWO PUFFS EVERY FOUR TO SIX HOURS
  2. PROAIR HFA [Suspect]
     Active Substance: ALBUTEROL SULFATE
     Indication: WHEEZING

REACTIONS (5)
  - Intentional overdose [Unknown]
  - Intentional product use issue [Unknown]
  - Drug prescribing error [Unknown]
  - Wheezing [Unknown]
  - Product use issue [Unknown]
